FAERS Safety Report 16426656 (Version 1)
Quarter: 2019Q2

REPORT INFORMATION
  Report Type: Spontaneous
  Country: US (occurrence: US)
  Receive Date: 20190613
  Receipt Date: 20190613
  Transmission Date: 20190711
  Serious: Yes (Hospitalization)
  Sender: FDA-Public Use
  Company Number: US-TEVA-2019-US-1061361

PATIENT
  Age: 55 Year
  Sex: Male

DRUGS (2)
  1. METHOTREXATE. [Suspect]
     Active Substance: METHOTREXATE
     Indication: T-CELL TYPE ACUTE LEUKAEMIA
     Route: 065
  2. GLUCARPIDASE [Suspect]
     Active Substance: GLUCARPIDASE
     Indication: ACUTE KIDNEY INJURY
     Route: 065

REACTIONS (5)
  - Toxicity to various agents [Recovering/Resolving]
  - Drug ineffective [Unknown]
  - Hypotension [Unknown]
  - Acute kidney injury [Unknown]
  - Fluid overload [Unknown]
